FAERS Safety Report 26218935 (Version 1)
Quarter: 2025Q4

REPORT INFORMATION
  Report Type: Spontaneous
  Country: US (occurrence: US)
  Receive Date: 20251231
  Receipt Date: 20251231
  Transmission Date: 20260117
  Serious: No
  Sender: MILLICENT HOLDINGS
  Company Number: US-Millicent Holdings Ltd.-MILL20250376

PATIENT
  Sex: Female

DRUGS (2)
  1. INTRAROSA [Suspect]
     Active Substance: PRASTERONE
     Indication: Dyspareunia
     Dosage: AS DIRECTED, THREE TIMES PER WEEK
     Route: 067
  2. INTRAROSA [Suspect]
     Active Substance: PRASTERONE
     Dosage: NIGHTLY
     Route: 067

REACTIONS (4)
  - Application site discharge [Unknown]
  - Off label use [Unknown]
  - Product administration error [Unknown]
  - Wrong technique in product usage process [Unknown]
